FAERS Safety Report 5393278-1 (Version None)
Quarter: 2007Q3

REPORT INFORMATION
  Report Type: 
  Country: None (occurrence: None)
  Receive Date: 20070723
  Receipt Date: 20070711
  Transmission Date: 20080115
  Serious: Yes (Hospitalization)
  Sender: FDA-Public Use
  Company Number: PHBS2007AR11916

PATIENT
  Age: 14 Year
  Sex: Female

DRUGS (1)
  1. EXJADE [Suspect]
     Indication: PULMONARY HAEMOSIDEROSIS
     Dosage: UNK, UNK
     Route: 065
     Dates: start: 20070601

REACTIONS (5)
  - ENCEPHALITIS VIRAL [None]
  - LIFE SUPPORT [None]
  - PSEUDOMONAS INFECTION [None]
  - PULMONARY HAEMOSIDEROSIS [None]
  - RESPIRATORY TRACT INFECTION [None]
